FAERS Safety Report 4677153-3 (Version None)
Quarter: 2005Q2

REPORT INFORMATION
  Report Type: 
  Country: None (occurrence: None)
  Receive Date: 20050526
  Receipt Date: 20050512
  Transmission Date: 20051028
  Serious: Yes (Disabling)
  Sender: FDA-Public Use
  Company Number: DSA_26459_2005

PATIENT
  Age: 67 Year
  Sex: Male

DRUGS (1)
  1. MONO-TILDIEM - SLOW RELEASE [Suspect]
     Indication: HYPERTENSION
     Dosage: 200 MG Q DAY PO
     Route: 048
     Dates: start: 20010901

REACTIONS (3)
  - ERECTILE DYSFUNCTION [None]
  - LIBIDO DECREASED [None]
  - SPONTANEOUS PENILE ERECTION [None]
